FAERS Safety Report 15028809 (Version 2)
Quarter: 2018Q3

REPORT INFORMATION
  Report Type: Spontaneous
  Country: US (occurrence: US)
  Receive Date: 20180619
  Receipt Date: 20180816
  Transmission Date: 20181010
  Serious: Yes (Other)
  Sender: FDA-Public Use
  Company Number: US-SA-2018SA098708

PATIENT
  Age: 39 Year
  Sex: Female
  Weight: 117.02 kg

DRUGS (17)
  1. TAXOTERE [Suspect]
     Active Substance: DOCETAXEL
     Indication: BREAST CANCER FEMALE
     Dosage: 150 MG, Q3W
     Route: 042
     Dates: start: 20080604, end: 20080604
  2. LEVOXYL [Concomitant]
     Active Substance: LEVOTHYROXINE SODIUM
  3. BUMEX [Concomitant]
     Active Substance: BUMETANIDE
  4. METFORMIN [Concomitant]
     Active Substance: METFORMIN HYDROCHLORIDE
  5. WELLBUTRIN [Concomitant]
     Active Substance: BUPROPION HYDROCHLORIDE
  6. LIPITOR [Concomitant]
     Active Substance: ATORVASTATIN CALCIUM
  7. DURAGESIC [FENTANYL] [Concomitant]
  8. LYRICA [Concomitant]
     Active Substance: PREGABALIN
  9. JANUVIA [Concomitant]
     Active Substance: SITAGLIPTIN PHOSPHATE
  10. LASIX [Concomitant]
     Active Substance: FUROSEMIDE
  11. PERCOCET [OXYCODONE HYDROCHLORIDE;OXYCODONE TEREPHTHALATE;PARACETAMOL] [Concomitant]
  12. TAXOTERE [Suspect]
     Active Substance: DOCETAXEL
     Dosage: 150 MG, Q3W
     Route: 042
     Dates: start: 20080918, end: 20080918
  13. CYTOXAN [Concomitant]
     Active Substance: CYCLOPHOSPHAMIDE
  14. BYETTA [Concomitant]
     Active Substance: EXENATIDE
  15. GEMFIBROZIL. [Concomitant]
     Active Substance: GEMFIBROZIL
  16. PARAPLATIN [Concomitant]
     Active Substance: CARBOPLATIN
  17. HERCEPTIN [Concomitant]
     Active Substance: TRASTUZUMAB

REACTIONS (2)
  - Psychological trauma [Unknown]
  - Alopecia [Recovering/Resolving]

NARRATIVE: CASE EVENT DATE: 20080704
